FAERS Safety Report 19117647 (Version 1)
Quarter: 2021Q2

REPORT INFORMATION
  Report Type: Spontaneous
  Country: NL (occurrence: NL)
  Receive Date: 20210409
  Receipt Date: 20210409
  Transmission Date: 20210717
  Serious: Yes (Hospitalization)
  Sender: FDA-Public Use
  Company Number: NL-TEVA-2021-NL-1899066

PATIENT
  Age: 69 Year
  Sex: Male
  Weight: 68 kg

DRUGS (13)
  1. CLINDAMYCINE CAPSULE 600MG / BRAND NAME NOT SPECIFIED [Suspect]
     Active Substance: CLINDAMYCIN HYDROCHLORIDE
     Indication: STAPHYLOCOCCAL BACTERAEMIA
     Dosage: 1800 MILLIGRAM DAILY;
     Dates: start: 20210302, end: 20210318
  2. TEMAZEPAM CAPSULE 10MG / BRAND NAME NOT SPECIFIED [Concomitant]
     Active Substance: TEMAZEPAM
     Dosage: 10 MG (MILLIGRAM); THERAPY START DATE; THERAPY END DATE : ASKED BUT UNKNOWN
  3. OXYCODON CAPSULE  5MG / BRAND NAME NOT SPECIFIED [Concomitant]
     Active Substance: OXYCODONE
     Dosage: 5 MG (MILLIGRAM); THERAPY START DATE; THERAPY END DATE : ASKED BUT UNKNOWN
  4. PARACETAMOL BRUISTABLET 1000MG / BRAND NAME NOT SPECIFIED [Concomitant]
     Dosage: 1000 MG (MILLIGRAM); THERAPY START DATE; THERAPY END DATE : ASKED BUT UNKNOWN
  5. LEVOMENTHOL CREME 20MG/G / BRAND NAME NOT SPECIFIED [Concomitant]
     Dosage: 20 MG/G (MILLIGRAM PER GRAM); THERAPY START DATE; THERAPY END DATE : ASKED BUT UNKNOWN
  6. PREGABALINE CAPSULE  75MG / BRAND NAME NOT SPECIFIED [Concomitant]
     Dosage: 75 MG (MILLIGRAM); THERAPY START DATE; THERAPY END DATE : ASKED BUT UNKNOWN
  7. FUROSEMIDE TABLET 40MG / BRAND NAME NOT SPECIFIED [Concomitant]
     Dosage: 40 MG (MILLIGRAM); THERAPY START DATE; THERAPY END DATE : ASKED BUT UNKNOWN
  8. DALTEPARINE INJVLST 25.000IE/ML / BRAND NAME NOT SPECIFIED [Concomitant]
     Dosage: INJECTION FLUID, 25,000 IU / ML (UNITS PER MILLILITER) THERAPY START DATE; THERAPY END DATE : ASKU
  9. LISINOPRIL TABLET 10MG / BRAND NAME NOT SPECIFIED [Concomitant]
     Active Substance: LISINOPRIL
     Dosage: 10 MG (MILLIGRAM); THERAPY START DATE; THERAPY END DATE : ASKED BUT UNKNOWN
  10. CETOMACROGOL CREME / BRAND NAME NOT SPECIFIED [Concomitant]
     Dosage: THERAPY START DATE; THERAPY END DATE : ASKED BUT UNKNOWN
  11. FENTANYL NEUSSPRAY  12,5UG/DO / BRAND NAME NOT SPECIFIED [Concomitant]
     Dosage: 12.5 UG / DOSE (MICROGRAMS PER DOSE); THERAPY START DATE; THERAPY END DATE : ASKED BUT UNKNOWN
  12. NADROPARINE INJVLST  9500IE/ML / BRAND NAME NOT SPECIFIED [Concomitant]
     Dosage: INJECTION FLUID, 9500 IU / ML (UNITS PER MILLILITER); THERAPY START DATE; THERAPY END DATE : ASKU
  13. ERLOTINIB TABLET  25MG / BRAND NAME NOT SPECIFIED [Concomitant]
     Dosage: 25 MG (MILLIGRAM); THERAPY START DATE; THERAPY END DATE : ASKED BUT UNKNOWN

REACTIONS (3)
  - Erythema [Recovering/Resolving]
  - Pyrexia [Recovered/Resolved]
  - Hypotension [Recovered/Resolved]

NARRATIVE: CASE EVENT DATE: 20210316
